FAERS Safety Report 8220583-3 (Version None)
Quarter: 2012Q1

REPORT INFORMATION
  Report Type: 
  Country: None (occurrence: None)
  Receive Date: 20120320
  Receipt Date: 20120312
  Transmission Date: 20120608
  Serious: Yes (Other)
  Sender: FDA-Public Use
  Company Number: US-BAYER-2012-026061

PATIENT
  Age: 48 Year
  Sex: Male
  Weight: 46 kg

DRUGS (3)
  1. ALKA-SELTZER PLUS MUCUS + CONGESTION [Suspect]
     Indication: COUGH
     Dosage: BOTTLE COUNT 20, 2DF EVERY 5 HOURS
     Route: 048
     Dates: start: 20120308, end: 20120309
  2. INSULIN [Concomitant]
  3. ATENOLOL [Concomitant]

REACTIONS (3)
  - BLOOD GLUCOSE INCREASED [None]
  - HYPERHIDROSIS [None]
  - TREMOR [None]
